FAERS Safety Report 8007349-4 (Version None)
Quarter: 2011Q4

REPORT INFORMATION
  Report Type: 
  Country: None (occurrence: None)
  Receive Date: 20111222
  Receipt Date: 20111222
  Transmission Date: 20120403
  Serious: Yes (Hospitalization)
  Sender: FDA-Public Use
  Company Number: None

PATIENT
  Age: 96 Year
  Sex: Male
  Weight: 72.8 kg

DRUGS (2)
  1. MELOXICAM [Suspect]
     Indication: PAIN
     Dosage: 7.5 MG EVERY DAY PO
     Route: 048
     Dates: start: 20101119, end: 20111011
  2. FISH OIL [Suspect]
     Indication: HYPERTENSION
     Dosage: 1000 MG EVERY DAY PO
     Route: 048
     Dates: start: 20070215

REACTIONS (3)
  - CHEST PAIN [None]
  - DIZZINESS [None]
  - GASTRIC HAEMORRHAGE [None]
